FAERS Safety Report 15575662 (Version 2)
Quarter: 2019Q1

REPORT INFORMATION
  Report Type: Spontaneous
  Country: HU (occurrence: HU)
  Receive Date: 20181101
  Receipt Date: 20190102
  Transmission Date: 20190417
  Serious: Yes (Death)
  Sender: FDA-Public Use
  Company Number: HU-MYLANLABS-2018M1081585

PATIENT
  Age: 69 Year
  Sex: Male

DRUGS (8)
  1. CISPLATIN. [Suspect]
     Active Substance: CISPLATIN
     Indication: PLASMA CELL MYELOMA
     Dosage: UNK
     Route: 037
  2. ETOPOSIDE. [Suspect]
     Active Substance: ETOPOSIDE
     Indication: PLASMA CELL MYELOMA
     Dosage: UNK
     Route: 037
  3. BORTEZOMIB. [Suspect]
     Active Substance: BORTEZOMIB
     Indication: PLASMA CELL MYELOMA
     Dosage: UNK
     Route: 065
  4. ENDOXANA [Suspect]
     Active Substance: CYCLOPHOSPHAMIDE
     Indication: PLASMA CELL MYELOMA
     Dosage: UNK
     Route: 065
  5. LENALIDOMIDE [Concomitant]
     Active Substance: LENALIDOMIDE
     Indication: PLASMA CELL MYELOMA
     Dosage: UNK
     Route: 065
  6. CYTARABINE. [Suspect]
     Active Substance: CYTARABINE
     Indication: PLASMA CELL MYELOMA
     Dosage: UNK
     Route: 037
  7. THALIDOMIDE [Concomitant]
     Active Substance: THALIDOMIDE
     Indication: PLASMA CELL MYELOMA
     Dosage: UNK
     Route: 065
  8. DEXAMETHASONE. [Concomitant]
     Active Substance: DEXAMETHASONE
     Indication: PLASMA CELL MYELOMA
     Dosage: UNK
     Route: 065

REACTIONS (4)
  - Diplopia [Unknown]
  - Product use in unapproved indication [Unknown]
  - Plasma cell myeloma [Fatal]
  - Malignant neoplasm progression [Fatal]
